FAERS Safety Report 8374897-7 (Version None)
Quarter: 2012Q2

REPORT INFORMATION
  Report Type: 
  Country: None (occurrence: None)
  Receive Date: 20120521
  Receipt Date: 20120516
  Transmission Date: 20120825
  Serious: Yes (Other)
  Sender: FDA-Public Use
  Company Number: US-AMGEN-USASP2011026856

PATIENT
  Age: 68 Year
  Sex: Male
  Weight: 98.5 kg

DRUGS (23)
  1. GLYBURIDE AND METFORMIN HYDROCHLORIDE [Concomitant]
     Route: 048
  2. LANTUS [Concomitant]
  3. VIAGRA [Concomitant]
     Dosage: 50 MG, PRN
     Route: 048
  4. XALATAN [Concomitant]
     Route: 047
  5. CORTICOSTEROIDS [Concomitant]
     Dosage: UNK
     Route: 042
  6. NPLATE [Suspect]
     Indication: IDIOPATHIC THROMBOCYTOPENIC PURPURA
     Dosage: 99 MUG, QWK
     Dates: start: 20100820
  7. NPLATE [Suspect]
     Dosage: 99 MUG, QWK
     Dates: start: 20120316
  8. NPLATE [Suspect]
     Dates: start: 20100820
  9. VERAPAMIL [Concomitant]
     Dosage: 180 MG, BID
     Dates: end: 20110714
  10. TAMSULOSIN HCL [Concomitant]
     Dosage: 0.4 MG, UNK
  11. NIASPAN [Concomitant]
     Dosage: 500 MG, QD
     Route: 048
  12. OMEPRAZOLE [Concomitant]
     Dosage: 40 MG, QD
  13. ASPIRIN [Concomitant]
     Dosage: 325 MG, QD
     Route: 048
  14. PRAVASTATIN SODIUM [Concomitant]
     Dosage: 80 MG, QD
     Route: 048
  15. NPLATE [Suspect]
     Dosage: 99 MUG, QWK
     Dates: end: 20120420
  16. FLOMAX [Concomitant]
     Dosage: 0.4 MG, BID
     Route: 048
  17. FUROSEMIDE [Concomitant]
     Dosage: 20 MG, QOD
     Route: 048
  18. LISINOPRIL [Concomitant]
     Dosage: 5 MG, UNK
     Route: 048
     Dates: start: 20110714
  19. PREDNISONE [Concomitant]
     Dosage: 2.5 MG, UNK
     Dates: start: 20100812
  20. DIGOXIN [Concomitant]
     Dosage: 250 MUG, UNK
     Route: 048
  21. PROMACTA [Concomitant]
     Indication: IDIOPATHIC THROMBOCYTOPENIC PURPURA
     Dosage: 50 MG, UNK
  22. NPLATE [Suspect]
     Dosage: 99 MUG, QWK
     Dates: end: 20110101
  23. VICTOZA [Concomitant]
     Dosage: 1.8 MG, UNK
     Route: 058

REACTIONS (5)
  - DIABETES MELLITUS INADEQUATE CONTROL [None]
  - VENOUS INSUFFICIENCY [None]
  - IDIOPATHIC THROMBOCYTOPENIC PURPURA [None]
  - SUPRAVENTRICULAR TACHYCARDIA [None]
  - OEDEMA PERIPHERAL [None]
